FAERS Safety Report 12764185 (Version 8)
Quarter: 2020Q2

REPORT INFORMATION
  Report Type: Report from Study
  Country: US (occurrence: US)
  Receive Date: 20160920
  Receipt Date: 20200520
  Transmission Date: 20200713
  Serious: Yes (Hospitalization)
  Sender: FDA-Public Use
  Company Number: US-ACTELION-A-NJ2016-140725

PATIENT
  Age: 77 Year
  Sex: Female

DRUGS (16)
  1. ALBUTEROL. [Concomitant]
     Active Substance: ALBUTEROL
     Dosage: 0.083%
     Dates: start: 20161012
  2. CALCIUM CARBONATE. [Concomitant]
     Active Substance: CALCIUM CARBONATE
     Dosage: 1250 MG, UNK
     Dates: start: 20161012
  3. ASCORBIC ACID. [Concomitant]
     Active Substance: ASCORBIC ACID
     Dosage: 500 MG, UNK
  4. FERROUS GLUCONATE [Concomitant]
     Active Substance: FERROUS GLUCONATE
     Dosage: 324 MG, UNK
     Dates: start: 20161012
  5. INCRUSE ELLIPTA [Concomitant]
     Active Substance: UMECLIDINIUM BROMIDE
     Dosage: 62.5 MCG, UNK
     Dates: start: 20161012
  6. PANTOPRAZOLE [Concomitant]
     Active Substance: PANTOPRAZOLE
     Dosage: 40 MG, UNK
     Dates: start: 20161012
  7. OPSUMIT [Suspect]
     Active Substance: MACITENTAN
     Indication: PULMONARY HYPERTENSION
     Dosage: 10 MG, QD
     Route: 048
     Dates: start: 20160525, end: 20200310
  8. SILDENAFIL. [Concomitant]
     Active Substance: SILDENAFIL
  9. METOPROLOL. [Concomitant]
     Active Substance: METOPROLOL
     Dosage: 100 MG, UNK
     Dates: start: 20161012
  10. FUROSEMIDE. [Concomitant]
     Active Substance: FUROSEMIDE
     Dosage: 20 MG, UNK
  11. SIMVASTATIN. [Concomitant]
     Active Substance: SIMVASTATIN
     Dosage: 5 MG, UNK
     Dates: start: 20161012
  12. ALLOPURINOL. [Concomitant]
     Active Substance: ALLOPURINOL
     Dosage: 100 MG, UNK
     Dates: start: 20161012
  13. DOXAZOSIN [Concomitant]
     Active Substance: DOXAZOSIN MESYLATE
     Dosage: UNK
     Dates: start: 20161012
  14. K TAB [Concomitant]
     Dosage: 20 MEQ, UNK
     Dates: start: 20161012
  15. LISINOPRIL. [Concomitant]
     Active Substance: LISINOPRIL
     Dosage: 40 MG, UNK
     Dates: start: 20161012
  16. TIMOLOL. [Concomitant]
     Active Substance: TIMOLOL
     Dosage: 5 MG, UNK
     Dates: start: 20161012

REACTIONS (11)
  - Transfusion [Recovering/Resolving]
  - Sepsis [Recovered/Resolved]
  - Hospitalisation [Recovered/Resolved]
  - Rectal haemorrhage [Recovering/Resolving]
  - Anaemia [Unknown]
  - Haemoglobin decreased [Recovering/Resolving]
  - Product dose omission [Recovered/Resolved]
  - Gastrointestinal haemorrhage [Unknown]
  - Acute kidney injury [Recovered/Resolved with Sequelae]
  - Haemorrhoid operation [Recovering/Resolving]
  - Infection [Recovered/Resolved]

NARRATIVE: CASE EVENT DATE: 20200302
